FAERS Safety Report 5332934-8 (Version None)
Quarter: 2007Q2

REPORT INFORMATION
  Report Type: 
  Country: None (occurrence: None)
  Receive Date: 20070521
  Receipt Date: 20070508
  Transmission Date: 20071010
  Serious: Yes (Hospitalization)
  Sender: FDA-Public Use
  Company Number: 2007BI003772

PATIENT
  Age: 56 Year
  Sex: Male

DRUGS (5)
  1. AVONEX [Suspect]
     Indication: MULTIPLE SCLEROSIS
     Dosage: 30 UG; QW; IM
     Route: 030
     Dates: start: 20040916, end: 20070201
  2. DETROL LA [Concomitant]
  3. LIPITOR [Concomitant]
  4. HYDROCODONE BITARTRATE [Concomitant]
  5. ATENOLOL [Concomitant]

REACTIONS (4)
  - ASTHENIA [None]
  - FALL [None]
  - HEMIPARESIS [None]
  - HIP FRACTURE [None]
